FAERS Safety Report 17641468 (Version 1)
Quarter: 2020Q2

REPORT INFORMATION
  Report Type: Report from Study
  Country: US (occurrence: US)
  Receive Date: 20200407
  Receipt Date: 20200407
  Transmission Date: 20200713
  Serious: No
  Sender: FDA-Public Use
  Company Number: US-CELGENEUS-USA-20200401561

PATIENT
  Age: 79 Year
  Sex: Male

DRUGS (2)
  1. JAKAFI [Concomitant]
     Active Substance: RUXOLITINIB
     Indication: MYELOFIBROSIS
     Dosage: 5 MILLIGRAM
     Route: 065
     Dates: start: 201812, end: 201909
  2. FEDRATINIB [Suspect]
     Active Substance: FEDRATINIB
     Indication: MYELOFIBROSIS
     Dosage: 300-400 MG
     Route: 048
     Dates: start: 201910

REACTIONS (1)
  - Adverse drug reaction [Unknown]
